FAERS Safety Report 9651801 (Version 1)
Quarter: 2013Q4

REPORT INFORMATION
  Report Type: Spontaneous
  Country: JP (occurrence: JP)
  Receive Date: 20131029
  Receipt Date: 20131029
  Transmission Date: 20140711
  Serious: Yes (Death, Other)
  Sender: FDA-Public Use
  Company Number: JP-JNJFOC-20131013937

PATIENT
  Age: 76 Year
  Sex: Female

DRUGS (4)
  1. INFLIXIMAB, RECOMBINANT [Suspect]
     Indication: RHEUMATOID ARTHRITIS
     Dosage: STARTED BEFORE 6 YEARS
     Route: 042
  2. METHOTREXATE [Suspect]
     Indication: RHEUMATOID ARTHRITIS
     Dosage: STARTED BEFORE TEN YEARS
     Route: 065
  3. URSODEOXYCHOLIC ACID [Concomitant]
     Indication: AUTOIMMUNE HEPATITIS
     Route: 065
  4. PREDNISOLONE [Concomitant]
     Indication: AUTOIMMUNE HEPATITIS
     Route: 065

REACTIONS (3)
  - Aortic aneurysm [Fatal]
  - Diffuse large B-cell lymphoma [Unknown]
  - Anaemia [Unknown]
